FAERS Safety Report 6122089-4 (Version None)
Quarter: 2009Q1

REPORT INFORMATION
  Report Type: 
  Country: None (occurrence: None)
  Receive Date: 20090316
  Receipt Date: 20090316
  Transmission Date: 20090719
  Serious: Yes (Hospitalization)
  Sender: FDA-Public Use
  Company Number: None

PATIENT
  Age: 34 Year
  Sex: Female
  Weight: 63.5 kg

DRUGS (5)
  1. TRUVADA [Suspect]
     Indication: HIV INFECTION
     Dosage: 200/300 MG QD ORAL
     Route: 048
     Dates: start: 20081111, end: 20090215
  2. EFAVIRENZ [Suspect]
     Indication: HIV INFECTION
     Dosage: 600 MG QD ORAL
     Route: 048
     Dates: start: 20081111, end: 20090215
  3. COTRIMOXAZOLE [Concomitant]
  4. ETHAMBUTOL HCL [Concomitant]
  5. ISONIAZID [Concomitant]

REACTIONS (28)
  - ABDOMINAL TENDERNESS [None]
  - ALANINE AMINOTRANSFERASE INCREASED [None]
  - ASPARTATE AMINOTRANSFERASE INCREASED [None]
  - BASOPHIL COUNT INCREASED [None]
  - BLOOD ALKALINE PHOSPHATASE INCREASED [None]
  - BLOOD BICARBONATE DECREASED [None]
  - BLOOD BILIRUBIN INCREASED [None]
  - BLOOD CHLORIDE DECREASED [None]
  - BLOOD GLUCOSE DECREASED [None]
  - BLOOD PRESSURE DECREASED [None]
  - BLOOD PRESSURE INCREASED [None]
  - BLOOD SODIUM DECREASED [None]
  - CREPITATIONS [None]
  - DIARRHOEA [None]
  - DRUG TOXICITY [None]
  - FUNGUS SEROLOGY TEST POSITIVE [None]
  - HAEMOGLOBIN DECREASED [None]
  - HEADACHE [None]
  - HEPATOMEGALY [None]
  - HYPOTENSION [None]
  - IMMUNE RECONSTITUTION SYNDROME [None]
  - MONOCYTE COUNT INCREASED [None]
  - MUSCULOSKELETAL DISCOMFORT [None]
  - NEUTROPHIL COUNT INCREASED [None]
  - RENAL DISORDER [None]
  - RENAL FAILURE [None]
  - RESPIRATORY RATE INCREASED [None]
  - SPLENOMEGALY [None]
